FAERS Safety Report 24982948 (Version 1)
Quarter: 2025Q1

REPORT INFORMATION
  Report Type: Report from Study
  Country: CA (occurrence: CA)
  Receive Date: 20250218
  Receipt Date: 20250218
  Transmission Date: 20250408
  Serious: Yes (Other)
  Sender: MITSUBISHI TANABE PHARMA
  Company Number: CA-MTPC-MTPA2025-0002135

PATIENT
  Age: 70 Year
  Sex: Female

DRUGS (7)
  1. RADICAVA ORS [Suspect]
     Active Substance: EDARAVONE
     Indication: Amyotrophic lateral sclerosis
     Route: 048
     Dates: start: 20250129
  2. RADICAVA ORS [Suspect]
     Active Substance: EDARAVONE
     Indication: Amyotrophic lateral sclerosis
     Route: 048
     Dates: start: 20250129
  3. RADICAVA ORS [Suspect]
     Active Substance: EDARAVONE
     Route: 048
  4. RADICAVA ORS [Suspect]
     Active Substance: EDARAVONE
     Route: 048
  5. BACLOFEN [Concomitant]
     Active Substance: BACLOFEN
     Indication: Product used for unknown indication
     Route: 065
  6. BOTOX [Concomitant]
     Active Substance: ONABOTULINUMTOXINA
     Indication: Product used for unknown indication
     Route: 065
  7. LEVOTHYROXINE [Concomitant]
     Active Substance: LEVOTHYROXINE
     Indication: Product used for unknown indication
     Route: 065

REACTIONS (6)
  - Dysarthria [Unknown]
  - Tremor [Recovered/Resolved]
  - Pain in extremity [Recovered/Resolved]
  - Head discomfort [Not Recovered/Not Resolved]
  - Somnolence [Unknown]
  - Fatigue [Unknown]

NARRATIVE: CASE EVENT DATE: 20250129
